FAERS Safety Report 9028762 (Version 3)
Quarter: 2013Q1

REPORT INFORMATION
  Report Type: Spontaneous
  Country: US (occurrence: US)
  Receive Date: 20130124
  Receipt Date: 20130225
  Transmission Date: 20140127
  Serious: No
  Sender: FDA-Public Use
  Company Number: US-PFIZER INC-2013028713

PATIENT
  Age: 39 Year
  Sex: Female
  Weight: 95.24 kg

DRUGS (3)
  1. EFFEXOR [Suspect]
     Indication: ANXIETY
     Dosage: 75 MG, 1X/DAY
     Route: 048
  2. EFFEXOR [Suspect]
     Indication: DEPRESSION
  3. PAXIL [Concomitant]
     Dosage: UNK

REACTIONS (1)
  - Withdrawal syndrome [Unknown]
